FAERS Safety Report 6558192-4 (Version None)
Quarter: 2010Q1

REPORT INFORMATION
  Report Type: 
  Country: None (occurrence: None)
  Receive Date: 20100129
  Receipt Date: 20100121
  Transmission Date: 20100710
  Serious: Yes (Death, Hospitalization)
  Sender: FDA-Public Use
  Company Number: DK-AMGEN-UK371729

PATIENT
  Sex: Female

DRUGS (9)
  1. VECTIBIX [Suspect]
     Indication: COLORECTAL CANCER
     Route: 042
     Dates: start: 20090917, end: 20091008
  2. CAMPTOSAR [Suspect]
     Route: 065
     Dates: start: 20090917, end: 20091008
  3. MORFIN [Concomitant]
     Route: 058
     Dates: start: 20091027, end: 20091102
  4. PHYTOMENADIONE [Concomitant]
     Route: 042
     Dates: start: 20091027, end: 20091028
  5. NEXIUM [Concomitant]
     Route: 042
     Dates: start: 20091028, end: 20091102
  6. FRAGMIN [Concomitant]
     Route: 058
     Dates: start: 20080602, end: 20091027
  7. FURIX [Concomitant]
     Route: 042
     Dates: start: 20091031, end: 20091102
  8. IMODIUM [Concomitant]
     Route: 048
     Dates: start: 20091008, end: 20091102
  9. MAGNESIUM [Concomitant]
     Route: 048
     Dates: start: 20081218, end: 20091102

REACTIONS (4)
  - BLOOD ALKALINE PHOSPHATASE INCREASED [None]
  - DILATATION INTRAHEPATIC DUCT ACQUIRED [None]
  - GASTROINTESTINAL HAEMORRHAGE [None]
  - INTERNATIONAL NORMALISED RATIO INCREASED [None]
